FAERS Safety Report 4484139-0 (Version None)
Quarter: 2004Q4

REPORT INFORMATION
  Report Type: 
  Country: None (occurrence: None)
  Receive Date: 20041025
  Receipt Date: 20041012
  Transmission Date: 20050328
  Serious: Yes (Life-Threatening, Hospitalization, Disabling)
  Sender: FDA-Public Use
  Company Number: US-MERCK-0410USA01843

PATIENT
  Age: 46 Year
  Sex: Female

DRUGS (11)
  1. VIOXX [Suspect]
     Indication: OSTEOARTHRITIS
     Route: 048
     Dates: start: 20020101, end: 20040101
  2. AVANDIA [Concomitant]
     Route: 065
  3. GLUCOPHAGE [Concomitant]
     Route: 065
  4. PREVACID [Concomitant]
     Route: 065
  5. EFFEXOR XR [Concomitant]
     Route: 065
  6. COUMADIN [Concomitant]
     Route: 065
  7. KLONOPIN [Concomitant]
     Route: 065
  8. ELAVIL [Concomitant]
     Route: 065
  9. VITAMINS (UNSPECIFIED) [Concomitant]
     Route: 065
  10. LASIX [Concomitant]
     Route: 065
  11. [THERAPY UNSPECIFIED] [Concomitant]
     Route: 065

REACTIONS (3)
  - DYSPNOEA [None]
  - FIBROMYALGIA [None]
  - PULMONARY EMBOLISM [None]
